FAERS Safety Report 24286398 (Version 1)
Quarter: 2024Q3

REPORT INFORMATION
  Report Type: Spontaneous
  Country: US (occurrence: US)
  Receive Date: 20240905
  Receipt Date: 20240905
  Transmission Date: 20241016
  Serious: No
  Sender: BAYER
  Company Number: US-BAYER-2024A126450

PATIENT
  Age: 64 Year
  Sex: Male

DRUGS (4)
  1. GADAVIST [Suspect]
     Active Substance: GADOBUTROL
     Indication: Magnetic resonance imaging heart
     Dosage: 9ML GADAVIST HAND INJECTED
  2. GADAVIST [Suspect]
     Active Substance: GADOBUTROL
     Indication: Magnetic resonance imaging head
  3. GADAVIST [Suspect]
     Active Substance: GADOBUTROL
     Indication: Breast scan
  4. GADAVIST [Suspect]
     Active Substance: GADOBUTROL
     Indication: Abdomen scan

REACTIONS (1)
  - Therapeutic product effect delayed [None]
